FAERS Safety Report 24456572 (Version 2)
Quarter: 2024Q4

REPORT INFORMATION
  Report Type: Report from Study
  Country: US (occurrence: US)
  Receive Date: 20241017
  Receipt Date: 20241018
  Transmission Date: 20250115
  Serious: No
  Sender: ROCHE
  Company Number: US-ROCHE-3510990

PATIENT
  Age: 67 Year
  Sex: Female

DRUGS (8)
  1. RITUXAN [Suspect]
     Active Substance: RITUXIMAB
     Indication: Neuromyelitis optica spectrum disorder
     Dosage: 81 KG WEEKLY FOR 4 WEEKS EVERY 6 MONTHS
     Route: 042
     Dates: start: 2012
  2. RITUXAN [Suspect]
     Active Substance: RITUXIMAB
     Indication: Multiple sclerosis
  3. RITUXAN [Suspect]
     Active Substance: RITUXIMAB
     Indication: Demyelination
  4. NORVASC [Concomitant]
     Active Substance: AMLODIPINE BESYLATE
  5. VOLTAREN [Concomitant]
     Active Substance: DICLOFENAC SODIUM
  6. COLACE [Concomitant]
     Active Substance: DOCUSATE SODIUM
  7. BARACLUDE [Concomitant]
     Active Substance: ENTECAVIR
  8. VITAMIN D [Concomitant]
     Active Substance: VITAMIN D NOS

REACTIONS (2)
  - Off label use [Unknown]
  - Hypertension [Not Recovered/Not Resolved]
